FAERS Safety Report 25179557 (Version 1)
Quarter: 2025Q2

REPORT INFORMATION
  Report Type: Spontaneous
  Country: US (occurrence: None)
  Receive Date: 20250409
  Receipt Date: 20250409
  Transmission Date: 20250716
  Serious: Yes (Life-Threatening, Hospitalization)
  Sender: FDA-CTU
  Company Number: None

PATIENT
  Age: 92 Year
  Sex: Male

DRUGS (2)
  1. VANCOMYCIN HYDROCHLORIDE [Suspect]
     Active Substance: VANCOMYCIN HYDROCHLORIDE
     Indication: Septic shock
     Dosage: FREQUENCY : TWICE A DAY;?
     Route: 042
     Dates: start: 20250127, end: 20250129
  2. PIPERACILLIN SODIUM\TAZOBACTAM SODIUM [Suspect]
     Active Substance: PIPERACILLIN SODIUM\TAZOBACTAM SODIUM
     Dosage: OTHER STRENGTH : 0.375/50 GM/ML;?FREQUENCY : 4 TIMES A DAY;?
     Route: 042
     Dates: start: 20250129, end: 20250129

REACTIONS (3)
  - Pruritus [None]
  - Adverse drug reaction [None]
  - Stevens-Johnson syndrome [None]

NARRATIVE: CASE EVENT DATE: 20250129
